FAERS Safety Report 15413447 (Version 1)
Quarter: 2018Q3

REPORT INFORMATION
  Report Type: Spontaneous
  Country: US (occurrence: US)
  Receive Date: 20180921
  Receipt Date: 20180921
  Transmission Date: 20181010
  Serious: No
  Sender: FDA-Public Use
  Company Number: US-SHIRE-US201835808

PATIENT
  Sex: Female

DRUGS (2)
  1. LIALDA [Suspect]
     Active Substance: MESALAMINE
     Indication: CROHN^S DISEASE
     Dosage: 2.4 G, UNK
     Route: 065
     Dates: start: 201601
  2. LIALDA [Suspect]
     Active Substance: MESALAMINE
     Dosage: 4.8 G, UNK
     Route: 065
     Dates: start: 201701

REACTIONS (2)
  - Drug ineffective [Unknown]
  - Medication residue present [Unknown]
